FAERS Safety Report 9913218 (Version 1)
Quarter: 2014Q1

REPORT INFORMATION
  Report Type: Spontaneous
  Country: US (occurrence: None)
  Receive Date: 20140218
  Receipt Date: 20140218
  Transmission Date: 20141002
  Serious: Yes (Other)
  Sender: FDA-Public Use
  Company Number: None

PATIENT
  Age: 50 Year
  Sex: Female
  Weight: 86.18 kg

DRUGS (1)
  1. SEROQUEL [Suspect]
     Dosage: QHS/BEDTIME
     Route: 048

REACTIONS (5)
  - Agitation [None]
  - Insomnia [None]
  - Psychotic disorder [None]
  - No therapeutic response [None]
  - Product substitution issue [None]
